FAERS Safety Report 14532183 (Version 2)
Quarter: 2018Q3

REPORT INFORMATION
  Report Type: Report from Study
  Country: US (occurrence: US)
  Receive Date: 20180214
  Receipt Date: 20180724
  Transmission Date: 20181010
  Serious: Yes (Other)
  Sender: FDA-Public Use
  Company Number: US-ACTELION-A-US2016-130198

PATIENT
  Age: 60 Year
  Sex: Male
  Weight: 97.96 kg

DRUGS (4)
  1. OPSUMIT [Suspect]
     Active Substance: MACITENTAN
     Indication: PULMONARY ARTERIAL HYPERTENSION
     Dosage: 10 MG, QD
     Route: 048
     Dates: start: 20140225
  2. REMODULIN [Concomitant]
     Active Substance: TREPROSTINIL
  3. COUMADIN [Concomitant]
     Active Substance: WARFARIN SODIUM
  4. OPSUMIT [Suspect]
     Active Substance: MACITENTAN
     Dosage: UNK
     Route: 048

REACTIONS (24)
  - Sinusitis [Unknown]
  - Dizziness [Unknown]
  - Influenza [Recovered/Resolved]
  - Infusion site haemorrhage [Unknown]
  - Angina pectoris [Unknown]
  - Rhinorrhoea [Recovering/Resolving]
  - Respiratory tract congestion [Unknown]
  - Chest pain [Unknown]
  - Nasopharyngitis [Unknown]
  - Infusion site infection [Unknown]
  - Infusion site erythema [Unknown]
  - Hypoaesthesia oral [Unknown]
  - Dysgeusia [Unknown]
  - Cataract [Unknown]
  - Blood blister [Unknown]
  - Cough [Unknown]
  - Transient ischaemic attack [Unknown]
  - Malaise [Unknown]
  - Sneezing [Recovering/Resolving]
  - Infusion site pain [Unknown]
  - Cataract operation [Unknown]
  - International normalised ratio abnormal [Unknown]
  - Unevaluable event [Recovering/Resolving]
  - Productive cough [Unknown]

NARRATIVE: CASE EVENT DATE: 20161115
